FAERS Safety Report 4861213-8 (Version None)
Quarter: 2005Q4

REPORT INFORMATION
  Report Type: 
  Country: None (occurrence: None)
  Receive Date: 20051216
  Receipt Date: 20051202
  Transmission Date: 20060501
  Serious: Yes (Death, Life-Threatening, Hospitalization, Disabling, Other)
  Sender: FDA-Public Use
  Company Number: MEDI-0003596

PATIENT
  Age: 14 Year
  Sex: Female
  Weight: 57 kg

DRUGS (3)
  1. ETHYOL [Suspect]
     Indication: CHEMOTHERAPY
     Dosage: QD FOR 5 DAYS, INTRAVENOUS
     Route: 042
     Dates: start: 20020522, end: 20020814
  2. CISPLATIN [Concomitant]
  3. ETOPOSIDE [Concomitant]

REACTIONS (10)
  - ANURIA [None]
  - DEAFNESS NEUROSENSORY [None]
  - DISEASE RECURRENCE [None]
  - HAEMODIALYSIS [None]
  - MALIGNANT NEOPLASM PROGRESSION [None]
  - NEPHROPATHY TOXIC [None]
  - OTOTOXICITY [None]
  - PERIPHERAL SENSORY NEUROPATHY [None]
  - RENAL FAILURE [None]
  - RENAL TUBULAR NECROSIS [None]
